FAERS Safety Report 13654315 (Version 2)
Quarter: 2017Q2

REPORT INFORMATION
  Report Type: Report from Study
  Country: None (occurrence: US)
  Receive Date: 20170614
  Receipt Date: 20170619
  Transmission Date: 20170830
  Serious: Yes (Other)
  Sender: FDA-Public Use
  Company Number: US-ABBVIE-17K-163-1986735-00

PATIENT
  Age: 51 Year
  Sex: Female

DRUGS (3)
  1. HUMIRA [Suspect]
     Active Substance: ADALIMUMAB
     Indication: PERICARDITIS
  2. HUMIRA [Suspect]
     Active Substance: ADALIMUMAB
     Indication: UVEITIS
     Route: 058
  3. HUMIRA [Suspect]
     Active Substance: ADALIMUMAB
     Indication: VASCULITIS

REACTIONS (16)
  - Uveitis [Not Recovered/Not Resolved]
  - Drug ineffective [Unknown]
  - Injection site erythema [Recovering/Resolving]
  - Injection site swelling [Recovering/Resolving]
  - Anxiety [Not Recovered/Not Resolved]
  - Injection site pruritus [Recovering/Resolving]
  - Injection site bruising [Recovering/Resolving]
  - Herpes ophthalmic [Unknown]
  - Dysphonia [Not Recovered/Not Resolved]
  - Product counterfeit [Unknown]
  - Cardiac disorder [Unknown]
  - Pericarditis [Not Recovered/Not Resolved]
  - Inflammation [Recovering/Resolving]
  - Product quality issue [Unknown]
  - Vasculitis [Not Recovered/Not Resolved]
  - Injection site pain [Recovered/Resolved]

NARRATIVE: CASE EVENT DATE: 2012
